FAERS Safety Report 19131633 (Version 1)
Quarter: 2021Q2

REPORT INFORMATION
  Report Type: Spontaneous
  Country: BR (occurrence: BR)
  Receive Date: 20210413
  Receipt Date: 20210413
  Transmission Date: 20210717
  Serious: Yes (Other)
  Sender: FDA-Public Use
  Company Number: BR-DSJP-DSE-2021-110589AA

PATIENT
  Sex: Female

DRUGS (2)
  1. BENICAR HCT [Suspect]
     Active Substance: HYDROCHLOROTHIAZIDE\OLMESARTAN MEDOXOMIL
     Dosage: 40/12.5 MG, QD
     Route: 048
  2. BENICAR HCT [Suspect]
     Active Substance: HYDROCHLOROTHIAZIDE\OLMESARTAN MEDOXOMIL
     Indication: HYPERTENSION
     Dosage: 40/12.5 MG, QD
     Route: 048
     Dates: start: 2019

REACTIONS (3)
  - Parathyroid tumour benign [Not Recovered/Not Resolved]
  - Affect lability [Not Recovered/Not Resolved]
  - Meningioma [Not Recovered/Not Resolved]

NARRATIVE: CASE EVENT DATE: 2019
